FAERS Safety Report 7898667-9 (Version None)
Quarter: 2011Q4

REPORT INFORMATION
  Report Type: 
  Country: None (occurrence: None)
  Receive Date: 20111107
  Receipt Date: 20111102
  Transmission Date: 20120403
  Serious: Yes (Hospitalization)
  Sender: FDA-Public Use
  Company Number: JP-B.I. PHARMACEUTICALS,INC./RIDGEFIELD-2011-DE-06139GD

PATIENT
  Age: 79 Year
  Sex: Female

DRUGS (7)
  1. TEMISARTAN [Suspect]
     Dosage: 20 MG
  2. LITHIUM CARBONATE [Suspect]
     Dosage: 200 MG
  3. LITHIUM CARBONATE [Suspect]
     Dosage: REDUCED DOSE (FROM INITIAL 700 MG)
  4. VALPROIC ACID [Suspect]
     Indication: BIPOLAR DISORDER
     Dosage: 200 MG
  5. TEMISARTAN [Suspect]
     Dosage: 40 MG
  6. LITHIUM CARBONATE [Suspect]
     Indication: BIPOLAR I DISORDER
     Dosage: 700 MG
  7. LITHIUM CARBONATE [Suspect]
     Dosage: 400 MG

REACTIONS (5)
  - TOXICITY TO VARIOUS AGENTS [None]
  - DIZZINESS [None]
  - RENAL IMPAIRMENT [None]
  - AGITATION [None]
  - INAPPROPRIATE AFFECT [None]
